FAERS Safety Report 7463757-1 (Version None)
Quarter: 2011Q2

REPORT INFORMATION
  Report Type: 
  Country: None (occurrence: None)
  Receive Date: 20110506
  Receipt Date: 20110428
  Transmission Date: 20111010
  Serious: Yes (Other)
  Sender: FDA-Public Use
  Company Number: US-ABBOTT-11P-163-0716991-00

PATIENT
  Sex: Male

DRUGS (1)
  1. HUMIRA [Suspect]
     Indication: CROHN'S DISEASE
     Dates: start: 20110201

REACTIONS (15)
  - RESPIRATORY TRACT CONGESTION [None]
  - SEASONAL ALLERGY [None]
  - DECREASED APPETITE [None]
  - HAEMOGLOBIN DECREASED [None]
  - NAUSEA [None]
  - ANAEMIA [None]
  - ARTHRALGIA [None]
  - PYREXIA [None]
  - RHINORRHOEA [None]
  - VOMITING [None]
  - HEADACHE [None]
  - VIRAL INFECTION [None]
  - DRUG INEFFECTIVE [None]
  - WEIGHT DECREASED [None]
  - INJECTION SITE REACTION [None]
